FAERS Safety Report 4372329-7 (Version None)
Quarter: 2004Q2

REPORT INFORMATION
  Report Type: 
  Country: None (occurrence: None)
  Receive Date: 20040526
  Receipt Date: 20040518
  Transmission Date: 20050107
  Serious: Yes (Other)
  Sender: FDA-Public Use
  Company Number: 2004214004DE

PATIENT
  Age: 54 Year
  Sex: Female

DRUGS (6)
  1. MYCOBUTIN [Suspect]
     Indication: BRONCHIOLITIS
     Dosage: 450 MG, DAILY, ORAL
     Route: 048
  2. KLACID [Concomitant]
  3. ACETYLCYSTEINE [Concomitant]
  4. ETHAMBUTOL DIHYDROCHLORIDE (ETHAMBUTOL DIHYDROCHLORIDE) [Concomitant]
  5. PREDNISOLONE [Concomitant]
  6. THEOPHYLLINE [Concomitant]

REACTIONS (2)
  - ARTHRITIS [None]
  - UVEITIS [None]
